FAERS Safety Report 8264967-6 (Version None)
Quarter: 2012Q2

REPORT INFORMATION
  Report Type: 
  Country: None (occurrence: None)
  Receive Date: 20120403
  Receipt Date: 20120322
  Transmission Date: 20120825
  Serious: Yes (Hospitalization, Disabling, Other)
  Sender: FDA-Public Use
  Company Number: AUR-APL-2011-04840

PATIENT
  Age: 71 Year
  Sex: Male

DRUGS (7)
  1. BENDROFLUMETHIAZIDE [Concomitant]
  2. ATENOLOL [Concomitant]
  3. SIMVASTATIN [Suspect]
     Indication: HYPERCHOLESTEROLAEMIA
     Dosage: 40 MG (40 MG, 1 IN 1 D), ORAL
     Route: 048
     Dates: start: 20090730, end: 20110801
  4. ALLOPURINOL [Concomitant]
  5. PROSTAP (LEUPRORELIN ACETATE) [Concomitant]
  6. CYPROTERONE ACETATE (CYPROTERONE ACETATE) [Suspect]
     Indication: PROSTATE CANCER
     Dosage: 300 MG (100, 3 IN 1 D), ORAL
     Route: 048
     Dates: start: 20110628, end: 20110801
  7. ACETYLSALICYLIC ACID SRT [Concomitant]

REACTIONS (8)
  - MUSCULAR WEAKNESS [None]
  - BLOOD URINE PRESENT [None]
  - HEPATOTOXICITY [None]
  - BLOOD CREATININE INCREASED [None]
  - RHABDOMYOLYSIS [None]
  - FATIGUE [None]
  - MALAISE [None]
  - DRUG INTERACTION [None]
